FAERS Safety Report 15861899 (Version 2)
Quarter: 2019Q1

REPORT INFORMATION
  Report Type: Spontaneous
  Country: US (occurrence: US)
  Receive Date: 20190124
  Receipt Date: 20190129
  Transmission Date: 20190417
  Serious: No
  Sender: FDA-Public Use
  Company Number: US-PFIZER INC-2019025454

PATIENT
  Sex: Female

DRUGS (2)
  1. PREMARIN [Suspect]
     Active Substance: ESTROGENS, CONJUGATED
     Indication: BACTERIAL INFECTION
  2. PREMARIN [Suspect]
     Active Substance: ESTROGENS, CONJUGATED
     Indication: UTERINE CANCER
     Dosage: UNK
     Route: 067

REACTIONS (6)
  - Product complaint [Unknown]
  - Application site erosion [Unknown]
  - Application site irritation [Unknown]
  - Product use in unapproved indication [Unknown]
  - Application site pain [Unknown]
  - Contraindicated product administered [Unknown]
